FAERS Safety Report 8107027-7 (Version None)
Quarter: 2012Q1

REPORT INFORMATION
  Report Type: 
  Country: None (occurrence: None)
  Receive Date: 20120202
  Receipt Date: 20120202
  Transmission Date: 20120608
  Serious: Yes (Other)
  Sender: FDA-Public Use
  Company Number: None

PATIENT
  Age: 45 Year
  Sex: Male
  Weight: 51.709 kg

DRUGS (1)
  1. TRAMADOL HCL [Suspect]

REACTIONS (7)
  - FATIGUE [None]
  - ASTHENIA [None]
  - DIZZINESS [None]
  - HYPOAESTHESIA [None]
  - ARTHROPATHY [None]
  - HEART RATE INCREASED [None]
  - CHEST PAIN [None]
